FAERS Safety Report 20183784 (Version 1)
Quarter: 2021Q4

REPORT INFORMATION
  Report Type: Spontaneous
  Country: US (occurrence: US)
  Receive Date: 20211214
  Receipt Date: 20211214
  Transmission Date: 20220303
  Serious: Yes (Hospitalization, Other)
  Sender: FDA-Public Use
  Company Number: US-LUPIN PHARMACEUTICALS INC.-2021-24559

PATIENT
  Age: 57 Year
  Sex: Male

DRUGS (3)
  1. CEFTRIAXONE [Suspect]
     Active Substance: CEFTRIAXONE
     Indication: Pancreatitis
     Dosage: UNK
     Route: 065
  2. PIPERACILLIN SODIUM\TAZOBACTAM SODIUM [Suspect]
     Active Substance: PIPERACILLIN SODIUM\TAZOBACTAM SODIUM
     Indication: Pancreatitis
     Dosage: UNK
     Route: 065
  3. METRONIDAZOLE [Concomitant]
     Active Substance: METRONIDAZOLE
     Indication: Pancreatitis
     Dosage: UNK
     Route: 065

REACTIONS (4)
  - Drug reaction with eosinophilia and systemic symptoms [Recovering/Resolving]
  - Rectal haemorrhage [Recovering/Resolving]
  - Haemoglobin decreased [Recovering/Resolving]
  - Thrombocytopenia [Recovering/Resolving]
